FAERS Safety Report 8893721 (Version 1)
Quarter: 2012Q4

REPORT INFORMATION
  Report Type: 
  Country: US (occurrence: US)
  Receive Date: 20121108
  Receipt Date: 20121108
  Transmission Date: 20130627
  Serious: No
  Sender: FDA-Public Use
  Company Number: US-BAYER-2012-115945

PATIENT
  Age: 63 Year
  Sex: Male

DRUGS (1)
  1. STAXYN (FDT/ODT) [Suspect]
     Indication: ERECTILE DYSFUNCTION
     Dosage: 10 mg, QD (two or three days apart)
     Route: 048
     Dates: start: 201209, end: 20121103

REACTIONS (2)
  - Drug ineffective [None]
  - Drug ineffective [None]
